FAERS Safety Report 7597474-4 (Version None)
Quarter: 2011Q3

REPORT INFORMATION
  Report Type: 
  Country: None (occurrence: None)
  Receive Date: 20110708
  Receipt Date: 20110629
  Transmission Date: 20111222
  Serious: Yes (Other)
  Sender: FDA-Public Use
  Company Number: PHHY2011FR58190

PATIENT
  Sex: Female
  Weight: 59 kg

DRUGS (2)
  1. XYZAL [Concomitant]
     Dosage: 2 DF, DAILY
     Dates: start: 20110309
  2. TASIGNA [Suspect]
     Indication: CHRONIC MYELOID LEUKAEMIA
     Dosage: 400 MG, BID
     Route: 048
     Dates: start: 20110412

REACTIONS (4)
  - ALOPECIA [None]
  - DRY SKIN [None]
  - RASH [None]
  - KERATOSIS PILARIS [None]
